FAERS Safety Report 14013673 (Version 1)
Quarter: 2017Q3

REPORT INFORMATION
  Report Type: Spontaneous
  Country: US (occurrence: US)
  Receive Date: 20170926
  Receipt Date: 20170926
  Transmission Date: 20171128
  Serious: Yes (Hospitalization)
  Sender: FDA-Public Use
  Company Number: US-PIRAMAL CRITICAL CARE LIMITED-T201204572

PATIENT

DRUGS (1)
  1. GABLOFEN [Suspect]
     Active Substance: BACLOFEN
     Indication: PRODUCT USED FOR UNKNOWN INDICATION
     Dosage: 450 ?G, QD
     Route: 037

REACTIONS (6)
  - Pain [Unknown]
  - Insomnia [Unknown]
  - Device occlusion [Recovered/Resolved]
  - Decreased appetite [Unknown]
  - Withdrawal syndrome [Unknown]
  - Muscle spasticity [Unknown]
